FAERS Safety Report 20654048 (Version 1)
Quarter: 2022Q1

REPORT INFORMATION
  Report Type: Spontaneous
  Country: US (occurrence: US)
  Receive Date: 20220330
  Receipt Date: 20220330
  Transmission Date: 20220424
  Serious: No
  Sender: FDA-Public Use
  Company Number: US-NOVARTISTESTPH-NVSC2022US064915

PATIENT
  Sex: Female

DRUGS (1)
  1. KESIMPTA [Suspect]
     Active Substance: OFATUMUMAB
     Indication: Product used for unknown indication
     Dosage: (20MG/0.4ML), QMO
     Route: 065
     Dates: start: 202110

REACTIONS (6)
  - Paraesthesia [Unknown]
  - Grip strength decreased [Unknown]
  - Feeling abnormal [Unknown]
  - Thinking abnormal [Unknown]
  - Central nervous system lesion [Unknown]
  - Swelling [Unknown]
